FAERS Safety Report 5768653-3 (Version None)
Quarter: 2008Q2

REPORT INFORMATION
  Report Type: 
  Country: None (occurrence: None)
  Receive Date: 20080612
  Receipt Date: 20080310
  Transmission Date: 20081010
  Serious: No
  Sender: FDA-Public Use
  Company Number: US-ABBOTT-08P-163-0441823-00

PATIENT
  Sex: Female
  Weight: 68.1 kg

DRUGS (11)
  1. HUMIRA [Suspect]
     Indication: RHEUMATOID ARTHRITIS
     Route: 058
     Dates: start: 20080204
  2. TERIPARATIDE [Concomitant]
     Indication: RHEUMATOID ARTHRITIS
     Route: 050
     Dates: start: 20070901
  3. WARFARIN SODIUM [Concomitant]
     Indication: MYOCARDIAL INFARCTION
     Route: 048
  4. ATENOLOL [Concomitant]
     Indication: HYPERTENSION
     Route: 048
  5. DIGOXIN [Concomitant]
     Indication: CARDIAC FAILURE CONGESTIVE
     Route: 048
  6. FUROSEMIDE [Concomitant]
     Indication: CARDIAC FAILURE CONGESTIVE
     Route: 048
  7. POTASSIUM CHLORIDE [Concomitant]
     Indication: MINERAL SUPPLEMENTATION
     Route: 048
  8. CLONAZEPAM [Concomitant]
     Indication: ANXIETY
     Route: 048
  9. SPIRAEA INHALER [Concomitant]
     Indication: ASTHMA
     Route: 048
  10. ALBUTEROL [Concomitant]
     Indication: ASTHMA
     Route: 048
  11. TRAMADOL HCL [Concomitant]
     Indication: PAIN MANAGEMENT
     Route: 048

REACTIONS (4)
  - ARTHRALGIA [None]
  - EAR DISCOMFORT [None]
  - HEADACHE [None]
  - JOINT SWELLING [None]
